FAERS Safety Report 14196397 (Version 1)
Quarter: 2017Q4

REPORT INFORMATION
  Report Type: Spontaneous
  Country: BR (occurrence: BR)
  Receive Date: 20171116
  Receipt Date: 20171116
  Transmission Date: 20180321
  Serious: Yes (Death, Other)
  Sender: FDA-Public Use
  Company Number: BR-PFIZER INC-2017478686

PATIENT
  Age: 77 Year
  Sex: Male

DRUGS (1)
  1. SUTENT [Suspect]
     Active Substance: SUNITINIB MALATE
     Dosage: 50 MG, UNK
     Dates: start: 20171024

REACTIONS (7)
  - Asthenia [Unknown]
  - Eating disorder [Recovering/Resolving]
  - Tooth disorder [Unknown]
  - Oral pain [Recovering/Resolving]
  - Death [Fatal]
  - Weight decreased [Unknown]
  - Pallor [Unknown]

NARRATIVE: CASE EVENT DATE: 2017
